FAERS Safety Report 18123638 (Version 1)
Quarter: 2020Q3

REPORT INFORMATION
  Report Type: Spontaneous
  Country: US (occurrence: US)
  Receive Date: 20200807
  Receipt Date: 20200807
  Transmission Date: 20201103
  Serious: No
  Sender: FDA-Public Use
  Company Number: None

PATIENT
  Age: 42 Year
  Sex: Female
  Weight: 74.84 kg

DRUGS (4)
  1. FISH OIL [Concomitant]
     Active Substance: FISH OIL
  2. HERB VITAMINS [Concomitant]
  3. VITAMIN C [Concomitant]
     Active Substance: ASCORBIC ACID
  4. NEXPLANON [Suspect]
     Active Substance: ETONOGESTREL
     Indication: ENDOMETRIOSIS
     Dates: start: 20200630, end: 20200803

REACTIONS (6)
  - Abdominal pain upper [None]
  - Headache [None]
  - Nausea [None]
  - Fatigue [None]
  - Drug hypersensitivity [None]
  - Dysphagia [None]

NARRATIVE: CASE EVENT DATE: 20200801
